FAERS Safety Report 12296322 (Version 10)
Quarter: 2016Q4

REPORT INFORMATION
  Report Type: Spontaneous
  Country: BR (occurrence: BR)
  Receive Date: 20160422
  Receipt Date: 20161115
  Transmission Date: 20170207
  Serious: Yes (Other)
  Sender: FDA-Public Use
  Company Number: BR-JNJFOC-20160419351

PATIENT
  Sex: Male

DRUGS (8)
  1. OMEPRAZOLE. [Concomitant]
     Active Substance: OMEPRAZOLE
     Route: 065
  2. IMBRUVICA [Suspect]
     Active Substance: IBRUTINIB
     Indication: CHRONIC LYMPHOCYTIC LEUKAEMIA
     Route: 048
     Dates: start: 20151210
  3. ATORVASTATIN [Concomitant]
     Active Substance: ATORVASTATIN
     Route: 065
  4. INDAPAMIDE. [Concomitant]
     Active Substance: INDAPAMIDE
     Route: 065
  5. TELMISARTAN. [Concomitant]
     Active Substance: TELMISARTAN
     Route: 065
  6. ALLOPURINOL. [Concomitant]
     Active Substance: ALLOPURINOL
     Route: 065
  7. FRONTAL [Concomitant]
     Active Substance: ALPRAZOLAM
     Route: 065
  8. IMBRUVICA [Suspect]
     Active Substance: IBRUTINIB
     Indication: B-CELL SMALL LYMPHOCYTIC LYMPHOMA
     Route: 048
     Dates: start: 20151210

REACTIONS (14)
  - Anaemia [Recovering/Resolving]
  - Haematoma [Not Recovered/Not Resolved]
  - Diarrhoea [Unknown]
  - Skin papilloma [Not Recovered/Not Resolved]
  - Purulence [Unknown]
  - Constipation [Unknown]
  - Contusion [Not Recovered/Not Resolved]
  - Haemorrhage [Unknown]
  - Skin cancer [Not Recovered/Not Resolved]
  - White blood cell count increased [Recovered/Resolved]
  - Neoplasm malignant [Not Recovered/Not Resolved]
  - Osteoarthritis [Unknown]
  - Fall [Not Recovered/Not Resolved]
  - Hyperkeratosis [Not Recovered/Not Resolved]
